FAERS Safety Report 5735625-4 (Version None)
Quarter: 2008Q2

REPORT INFORMATION
  Report Type: 
  Country: None (occurrence: None)
  Receive Date: 20080512
  Receipt Date: 20080430
  Transmission Date: 20081010
  Serious: Yes (Hospitalization, Other)
  Sender: FDA-Public Use
  Company Number: US-PFIZER INC-2008038507

PATIENT
  Sex: Female
  Weight: 68 kg

DRUGS (16)
  1. LYRICA [Suspect]
     Indication: POST HERPETIC NEURALGIA
  2. GABAPENTIN [Suspect]
     Indication: PAIN MANAGEMENT
  3. AZATHIOPRINE [Suspect]
     Dates: start: 20070101, end: 20080101
  4. PLAQUENIL [Concomitant]
     Indication: SYSTEMIC LUPUS ERYTHEMATOSUS
  5. OXYCONTIN [Concomitant]
     Dosage: DAILY DOSE:160MG
  6. SOMA [Concomitant]
  7. FUROSEMIDE [Concomitant]
  8. PREDNISONE TAB [Concomitant]
  9. LORAZEPAM [Concomitant]
  10. SERTRALINE [Concomitant]
  11. ALBUTEROL [Concomitant]
     Route: 055
  12. FLONASE [Concomitant]
  13. VITAMINS [Concomitant]
  14. PRIMIDONE [Concomitant]
  15. MORPHINE [Concomitant]
  16. VICODIN [Concomitant]

REACTIONS (3)
  - BLOOD POTASSIUM DECREASED [None]
  - HAEMATOCHEZIA [None]
  - WEIGHT INCREASED [None]
